FAERS Safety Report 8158855-3 (Version None)
Quarter: 2012Q1

REPORT INFORMATION
  Report Type: 
  Country: None (occurrence: None)
  Receive Date: 20120223
  Receipt Date: 20120217
  Transmission Date: 20120608
  Serious: Yes (Hospitalization, Disabling)
  Sender: FDA-Public Use
  Company Number: JP-PFIZER INC-2011242760

PATIENT
  Age: 76 Year
  Sex: Female
  Weight: 41 kg

DRUGS (8)
  1. OPALMON [Suspect]
     Indication: SPINAL OSTEOARTHRITIS
     Dosage: 15 UG, 3X/DAY
  2. ACETYLSALICYLIC ACID SRT [Suspect]
     Indication: ANGINA PECTORIS
     Dosage: 100 MG, 1X/DAY
  3. ALLOPURINOL [Suspect]
     Indication: HYPERURICAEMIA
     Dosage: 50 MG, 1X/DAY
  4. PURSENNID [Suspect]
     Indication: CONSTIPATION
     Dosage: 2 DF, 1X/DAY
  5. COLCHICINE [Concomitant]
     Indication: GOUT
     Dosage: 0.5 MG, 3X/DAY
     Route: 048
     Dates: start: 20110829, end: 20110907
  6. NORVASC [Suspect]
     Indication: HYPERTENSION
     Dosage: 2.5 MG, 1X/DAY
  7. RABEPRAZOLE SODIUM [Suspect]
     Indication: GASTROOESOPHAGEAL REFLUX DISEASE
     Dosage: 10 MG, 1X/DAY
  8. CELECOXIB [Suspect]
     Indication: PAIN IN EXTREMITY
     Dosage: 100 MG, 2X/DAY
     Route: 048
     Dates: start: 20110912, end: 20110914

REACTIONS (1)
  - RENAL FAILURE CHRONIC [None]
